FAERS Safety Report 8076048-5 (Version None)
Quarter: 2012Q1

REPORT INFORMATION
  Report Type: 
  Country: None (occurrence: None)
  Receive Date: 20120127
  Receipt Date: 20110609
  Transmission Date: 20120608
  Serious: No
  Sender: FDA-Public Use
  Company Number: US-GLAXOSMITHKLINE-A0930942A

PATIENT
  Sex: Male

DRUGS (9)
  1. CELEXA [Concomitant]
  2. SEROQUEL [Concomitant]
  3. NORCO [Concomitant]
  4. PRAVASTATIN [Concomitant]
  5. LISINOPRIL [Concomitant]
  6. WELLBUTRIN [Suspect]
     Indication: DEPRESSION
     Dosage: 150MG PER DAY
     Route: 048
     Dates: start: 20110101
  7. NEBULIZER [Concomitant]
  8. DIAZEPAM [Concomitant]
  9. ALBUTEROL [Concomitant]

REACTIONS (1)
  - DRUG SCREEN FALSE POSITIVE [None]
